FAERS Safety Report 8978755 (Version 1)
Quarter: 2012Q4

REPORT INFORMATION
  Report Type: 
  Country: JP (occurrence: JP)
  Receive Date: 20121220
  Receipt Date: 20121220
  Transmission Date: 20130627
  Serious: Yes (Death)
  Sender: FDA-Public Use
  Company Number: JP-EISAI INC-E2020-11776-SPO-JP

PATIENT
  Age: 82 Year
  Sex: Female

DRUGS (4)
  1. ARICEPT [Suspect]
     Indication: DEMENTIA ALZHEIMER^S TYPE
     Route: 048
     Dates: start: 201110, end: 2011
  2. ARICEPT [Suspect]
     Route: 048
     Dates: start: 2011
  3. RISPERDAL [Concomitant]
     Indication: DEMENTIA ALZHEIMER^S TYPE
     Dosage: 0.5 mL/ day
     Route: 048
  4. DOGMATYL [Concomitant]
     Indication: DEMENTIA ALZHEIMER^S TYPE
     Route: 048

REACTIONS (1)
  - Sudden death [Fatal]
